FAERS Safety Report 18363951 (Version 12)
Quarter: 2021Q3

REPORT INFORMATION
  Report Type: Report from Study
  Country: IL (occurrence: IL)
  Receive Date: 20201009
  Receipt Date: 20210831
  Transmission Date: 20211014
  Serious: Yes (Other)
  Sender: FDA-Public Use
  Company Number: IL-JNJFOC-20160907271

PATIENT
  Age: 55 Year
  Sex: Female
  Weight: 70 kg

DRUGS (9)
  1. SIMPONI [Suspect]
     Active Substance: GOLIMUMAB
     Route: 058
  2. ACAMOL [Concomitant]
     Active Substance: ACETAMINOPHEN
     Route: 065
  3. OMEPRADEX [Concomitant]
     Active Substance: OMEPRAZOLE
     Route: 065
  4. MORPHINE [Concomitant]
     Active Substance: MORPHINE
     Route: 065
  5. ARAVA [Concomitant]
     Active Substance: LEFLUNOMIDE
     Route: 065
  6. SIMPONI [Suspect]
     Active Substance: GOLIMUMAB
     Indication: RHEUMATOID ARTHRITIS
     Route: 058
     Dates: start: 20160807
  7. TURMERIC [Concomitant]
     Active Substance: HERBALS\TURMERIC
     Route: 065
  8. OPTALGIN [Concomitant]
     Active Substance: METAMIZOLE
  9. VOLTAREN FORTE [Concomitant]
     Route: 065

REACTIONS (3)
  - Nasopharyngitis [Not Recovered/Not Resolved]
  - Drug ineffective [Unknown]
  - Rheumatoid arthritis [Not Recovered/Not Resolved]

NARRATIVE: CASE EVENT DATE: 2016
